FAERS Safety Report 18129305 (Version 4)
Quarter: 2021Q2

REPORT INFORMATION
  Report Type: Spontaneous
  Country: JP (occurrence: JP)
  Receive Date: 20200810
  Receipt Date: 20210518
  Transmission Date: 20210717
  Serious: Yes (Death, Life-Threatening, Hospitalization)
  Sender: FDA-Public Use
  Company Number: NVSJ2020JP007729

PATIENT
  Age: 72 Year
  Sex: Male

DRUGS (1)
  1. VOTRIENT [Suspect]
     Active Substance: PAZOPANIB HYDROCHLORIDE
     Indication: ANGIOSARCOMA RECURRENT
     Dosage: 400 MG
     Route: 048
     Dates: end: 2019

REACTIONS (5)
  - Respiratory failure [Fatal]
  - Metastases to lung [Not Recovered/Not Resolved]
  - Malignant neoplasm progression [Not Recovered/Not Resolved]
  - Metastases to spine [Not Recovered/Not Resolved]
  - Thrombocytopenia [Recovering/Resolving]

NARRATIVE: CASE EVENT DATE: 2019
